FAERS Safety Report 18090812 (Version 1)
Quarter: 2020Q3

REPORT INFORMATION
  Report Type: Spontaneous
  Country: US (occurrence: US)
  Receive Date: 20200730
  Receipt Date: 20200730
  Transmission Date: 20201103
  Serious: No
  Sender: FDA-Public Use
  Company Number: US-AUROBINDO-AUR-APL-2020-017258

PATIENT
  Age: 67 Year
  Sex: Female
  Weight: 52.15 kg

DRUGS (2)
  1. ALPRAZOLAM EXTENDED?RELEASE TABLETS 2MG [Suspect]
     Active Substance: ALPRAZOLAM
     Indication: ANXIETY
     Dosage: 3 DOSAGE FORM, DAILY
     Route: 065
  2. WELLBUTRIN [Concomitant]
     Active Substance: BUPROPION HYDROCHLORIDE
     Indication: PRODUCT USED FOR UNKNOWN INDICATION
     Dosage: UNK
     Route: 065

REACTIONS (7)
  - Middle insomnia [Unknown]
  - Nausea [Unknown]
  - Drug ineffective [Unknown]
  - Withdrawal syndrome [Unknown]
  - Headache [Unknown]
  - Product quality issue [Unknown]
  - Nightmare [Unknown]
